FAERS Safety Report 24620236 (Version 2)
Quarter: 2025Q1

REPORT INFORMATION
  Report Type: Spontaneous
  Country: US (occurrence: US)
  Receive Date: 20241114
  Receipt Date: 20250303
  Transmission Date: 20250408
  Serious: No
  Sender: PFIZER
  Company Number: US-PFIZER INC-PV202400147272

PATIENT
  Age: 63 Year
  Sex: Female

DRUGS (1)
  1. IBRANCE [Suspect]
     Active Substance: PALBOCICLIB

REACTIONS (2)
  - White blood cell count decreased [Unknown]
  - Tinnitus [Unknown]

NARRATIVE: CASE EVENT DATE: 20241101
